FAERS Safety Report 9377964 (Version 1)
Quarter: 2013Q3

REPORT INFORMATION
  Report Type: Report from Study
  Country: RU (occurrence: RU)
  Receive Date: 20130701
  Receipt Date: 20130701
  Transmission Date: 20140515
  Serious: Yes (Other)
  Sender: FDA-Public Use
  Company Number: RU-BAYER-2013-079169

PATIENT
  Age: 38 Year
  Sex: Female
  Weight: 56 kg

DRUGS (1)
  1. QLAIRA [Suspect]
     Dosage: UNK
     Dates: start: 20120713

REACTIONS (1)
  - Urogenital infection fungal [Recovering/Resolving]
